FAERS Safety Report 6654465-5 (Version None)
Quarter: 2010Q1

REPORT INFORMATION
  Report Type: 
  Country: None (occurrence: None)
  Receive Date: 20100326
  Receipt Date: 20100318
  Transmission Date: 20100710
  Serious: Yes (Congenital Anomaly)
  Sender: FDA-Public Use
  Company Number: GXKR2010GB03258

PATIENT
  Sex: Male

DRUGS (3)
  1. VENLAFAXINE [Suspect]
     Dosage: 225 MG (MATERNAL DOSE)
     Route: 064
  2. LITHIUM [Suspect]
     Dosage: 1000 MG (MATERNAL DOSE)
     Route: 064
  3. CODEINE SULFATE [Concomitant]
     Dosage: 15 MG, UNK  (MATERNAL DOSE)
     Route: 064

REACTIONS (3)
  - DRUG EXPOSURE DURING PREGNANCY [None]
  - HYPOSPADIAS [None]
  - MICROGNATHIA [None]
